FAERS Safety Report 16860449 (Version 2)
Quarter: 2019Q4

REPORT INFORMATION
  Report Type: Report from Study
  Country: IT (occurrence: IT)
  Receive Date: 20190927
  Receipt Date: 20191121
  Transmission Date: 20200122
  Serious: Yes (Hospitalization, Other)
  Sender: FDA-Public Use
  Company Number: IT-009507513-1909ITA009209

PATIENT
  Age: 34 Year
  Sex: Female

DRUGS (2)
  1. MAXALT [Suspect]
     Active Substance: RIZATRIPTAN BENZOATE
     Indication: DRUG ABUSE
     Dosage: 30 MG, TOTAL
     Route: 048
     Dates: start: 20190626, end: 20190626
  2. LEXOTAN [Suspect]
     Active Substance: BROMAZEPAM
     Indication: DRUG ABUSE
     Dosage: 10 MILLILITER, TOTAL
     Route: 048
     Dates: start: 20190626, end: 20190626

REACTIONS (4)
  - Hypokinesia [Recovering/Resolving]
  - Drug abuse [Recovering/Resolving]
  - Sopor [Recovering/Resolving]
  - Bradyphrenia [Recovering/Resolving]

NARRATIVE: CASE EVENT DATE: 20190627
